FAERS Safety Report 8589061-6 (Version None)
Quarter: 2012Q3

REPORT INFORMATION
  Report Type: 
  Country: None (occurrence: None)
  Receive Date: 20120813
  Receipt Date: 20120803
  Transmission Date: 20120928
  Serious: Yes (Other)
  Sender: FDA-Public Use
  Company Number: GB-BAYER-2012-078953

PATIENT
  Sex: Female

DRUGS (1)
  1. MIRENA [Suspect]
     Dosage: 20 MCG/24HR, CONT
     Route: 015
     Dates: start: 20110101, end: 20120729

REACTIONS (13)
  - NAUSEA [None]
  - ANXIETY [None]
  - HEADACHE [None]
  - FEELING ABNORMAL [None]
  - PALPITATIONS [None]
  - FATIGUE [None]
  - NERVOUSNESS [None]
  - CONFUSIONAL STATE [None]
  - ALOPECIA [None]
  - BLADDER IRRITATION [None]
  - CANDIDIASIS [None]
  - DEPRESSION [None]
  - MALAISE [None]
